FAERS Safety Report 9803275 (Version 3)
Quarter: 2014Q1

REPORT INFORMATION
  Report Type: Spontaneous
  Country: NO (occurrence: NO)
  Receive Date: 20140108
  Receipt Date: 20140127
  Transmission Date: 20141002
  Serious: Yes (Other)
  Sender: FDA-Public Use
  Company Number: NO-ASTELLAS-2013EU010920

PATIENT
  Age: 25 Year
  Sex: Female

DRUGS (6)
  1. BETMIGA [Suspect]
     Indication: HYPERTONIC BLADDER
     Dosage: 25 MG, UID/QD
     Route: 048
     Dates: start: 20130516, end: 20131113
  2. CONCERTA [Concomitant]
     Indication: ATTENTION DEFICIT/HYPERACTIVITY DISORDER
     Dosage: 36 MG, UID/QD
     Route: 065
  3. HIPREX [Concomitant]
     Dosage: 1 G, BID
     Route: 065
  4. ZOLOFT [Concomitant]
     Dosage: 50 MG, UID/QD
     Route: 065
  5. IBUX [Concomitant]
     Dosage: 400 MG, OTHER
     Route: 065
  6. STILNOCT [Concomitant]
     Dosage: 10 MG, PRN
     Route: 065

REACTIONS (3)
  - Nausea [Recovered/Resolved]
  - Dizziness [Recovered/Resolved]
  - Hallucination, olfactory [Recovered/Resolved]
